FAERS Safety Report 6883329-7 (Version None)
Quarter: 2010Q3

REPORT INFORMATION
  Report Type: 
  Country: None (occurrence: None)
  Receive Date: 20100727
  Receipt Date: 20080507
  Transmission Date: 20110219
  Serious: Yes (Death, Hospitalization)
  Sender: FDA-Public Use
  Company Number: US-PFIZER INC-2006088133

PATIENT
  Sex: Male
  Weight: 113.4 kg

DRUGS (2)
  1. CELEBREX [Suspect]
     Indication: ARTHRALGIA
     Dates: start: 20000222, end: 20010301
  2. VIOXX [Concomitant]

REACTIONS (1)
  - CEREBRAL HAEMORRHAGE [None]
